FAERS Safety Report 15342945 (Version 1)
Quarter: 2018Q3

REPORT INFORMATION
  Report Type: Report from Study
  Country: JP (occurrence: JP)
  Receive Date: 20180903
  Receipt Date: 20180903
  Transmission Date: 20181010
  Serious: Yes (Life-Threatening, Hospitalization)
  Sender: FDA-Public Use
  Company Number: JP-CELLTRION INC.-2015JP011268

PATIENT

DRUGS (69)
  1. INFLIXIMAB BS FOR I.V. INFUSION100 MG [NK] [Suspect]
     Active Substance: INFLIXIMAB
     Dosage: 330 MG/BODY/DAY
     Route: 042
     Dates: start: 20160715, end: 20160715
  2. SLOW?K [Concomitant]
     Active Substance: POTASSIUM CHLORIDE
     Dosage: 1200?2400 MG/DAY
     Dates: start: 20151102
  3. ACTONEL [Concomitant]
     Active Substance: RISEDRONATE SODIUM
     Indication: OSTEOPOROSIS
     Dosage: 17.5 MG/DAY
     Dates: start: 20150919
  4. CORTRIL [Concomitant]
     Active Substance: HYDROCORTISONE
     Dosage: 30 MG/DAY
     Dates: start: 20151027
  5. GASTER [Concomitant]
     Active Substance: FAMOTIDINE
     Dosage: 20  MG/DAY
     Dates: start: 20160617
  6. INFLIXIMAB BS FOR I.V. INFUSION100 MG [NK] [Suspect]
     Active Substance: INFLIXIMAB
     Indication: COLITIS ULCERATIVE
     Dosage: 320MG/BODY/DAY
     Route: 042
     Dates: start: 20150924, end: 20150924
  7. PREDONINE [Concomitant]
     Active Substance: PREDNISOLONE
     Dosage: 5 MG/DAY
     Dates: start: 20151019, end: 20151025
  8. SULBACILLIN [Concomitant]
     Active Substance: AMPICILLIN SODIUM\SULBACTAM SODIUM
     Indication: INFECTION PROPHYLAXIS
     Dosage: 4.5 MG/DAY
     Dates: start: 20151001, end: 20151005
  9. ALBUMIN BEHRING [Concomitant]
     Active Substance: ALBUMIN HUMAN
     Dosage: 100 MG/DAY
     Dates: start: 20151002, end: 20151003
  10. IOPAQUE [Concomitant]
     Active Substance: IOHEXOL
     Dosage: 100 ML/DAY
     Dates: start: 20151001
  11. RABEPRAZOLE SODIUM. [Concomitant]
     Active Substance: RABEPRAZOLE SODIUM
     Indication: GASTROOESOPHAGEAL REFLUX DISEASE
  12. THYRADIN?S [Concomitant]
     Active Substance: LEVOTHYROXINE
     Dosage: 75 ?G/DAY
     Dates: start: 20151008
  13. TALION                             /01587402/ [Concomitant]
     Active Substance: BEPOTASTINE
     Dosage: 20 MG/DAY
     Route: 065
     Dates: start: 20160826, end: 20160909
  14. HYDROCORTONE                       /00028603/ [Concomitant]
     Active Substance: HYDROCORTISONE SODIUM PHOSPHATE
     Dosage: 300  MG/DAY
     Dates: start: 20160617
  15. HYDROCORTONE                       /00028603/ [Concomitant]
     Active Substance: HYDROCORTISONE SODIUM PHOSPHATE
     Dosage: 200 MG/DAY
     Dates: start: 20160909
  16. CELESTAMINE [Concomitant]
     Active Substance: BETAMETHASONE\DEXCHLORPHENIRAMINE MALEATE
     Indication: PROPHYLAXIS
     Dosage: 2  DF/DAY
     Dates: start: 20161024
  17. INFLIXIMAB BS FOR I.V. INFUSION100 MG [NK] [Suspect]
     Active Substance: INFLIXIMAB
     Dosage: 290 MG/BODY/DAY
     Route: 042
     Dates: start: 20160212, end: 20160212
  18. INFLIXIMAB BS FOR I.V. INFUSION100 MG [NK] [Suspect]
     Active Substance: INFLIXIMAB
     Dosage: 330 MG/BODY/DAY
     Route: 042
     Dates: start: 20160408, end: 20160408
  19. CEFMETAZON [Concomitant]
     Active Substance: CEFMETAZOLE SODIUM
     Indication: COLITIS ULCERATIVE
     Dosage: 3 G/DAY
     Dates: start: 20150918, end: 20150927
  20. LOPERAMIDE HYDROCHLORIDE. [Concomitant]
     Active Substance: LOPERAMIDE HYDROCHLORIDE
     Indication: DIARRHOEA
     Dosage: 2 MG/DAY
     Dates: start: 20150926, end: 20150930
  21. NEXIUM [Concomitant]
     Active Substance: ESOMEPRAZOLE MAGNESIUM
     Indication: PROPHYLAXIS AGAINST GASTROINTESTINAL ULCER
     Dosage: 20 MG/DAY
     Dates: start: 20151103
  22. ALBUMIN BEHRING [Concomitant]
     Active Substance: ALBUMIN HUMAN
     Indication: HYPOALBUMINAEMIA
     Dosage: 100 MG/DAY
     Dates: start: 20150919, end: 20150922
  23. ZOLPIDEM TARTRATE. [Concomitant]
     Active Substance: ZOLPIDEM TARTRATE
     Indication: DEPRESSION
     Dosage: 5 MG/DAY
     Dates: start: 20151127, end: 20151218
  24. ASPARA POTASSIUM [Concomitant]
     Active Substance: POTASSIUM ASPARTATE
     Indication: HYPOKALAEMIA
     Dosage: 20 ML/DAY
     Dates: start: 20151003, end: 20151028
  25. HYDROCORTONE                       /00028603/ [Concomitant]
     Active Substance: HYDROCORTISONE SODIUM PHOSPHATE
     Dosage: 100 MG/DAY
     Dates: start: 20171125
  26. INFLIXIMAB BS FOR I.V. INFUSION100 MG [NK] [Suspect]
     Active Substance: INFLIXIMAB
     Dosage: 700 MG/BODY/DAY
     Route: 042
     Dates: start: 20161125, end: 20161125
  27. ELNEOPA NO.2 [Concomitant]
     Active Substance: AMINO ACIDS\CARBOHYDRATES\ELECTROLYTES NOS\VITAMINS
     Indication: COLITIS ULCERATIVE
     Dosage: 2000 ML, DAILY
     Dates: start: 20150923, end: 20151001
  28. OMEPRAZOLE. [Concomitant]
     Active Substance: OMEPRAZOLE
     Indication: PROPHYLAXIS AGAINST GASTROINTESTINAL ULCER
     Dosage: 40 MG/DAY
     Dates: start: 20150918, end: 20151021
  29. ELNEOPA NO.1 [Concomitant]
     Indication: COLITIS ULCERATIVE
     Dosage: 2000 ML/DAY
     Dates: start: 20150921, end: 20150923
  30. ATARAX?P                           /00058402/ [Concomitant]
     Active Substance: HYDROXYZINE HYDROCHLORIDE
     Indication: ABDOMINAL PAIN
     Dosage: 25 MG/DAY
     Dates: start: 20150924, end: 20151016
  31. SOSEGON                            /00052101/ [Concomitant]
     Active Substance: PENTAZOCINE
     Indication: ABDOMINAL PAIN
     Dosage: 15 MG/DAY
     Dates: start: 20150920, end: 20151016
  32. PREDONINE [Concomitant]
     Active Substance: PREDNISOLONE
     Indication: COLITIS ULCERATIVE
     Dosage: 60 MG/DAY
     Dates: start: 20150919, end: 20150925
  33. PREDONINE [Concomitant]
     Active Substance: PREDNISOLONE
     Dosage: 5 MG/DAY
     Dates: start: 20151110, end: 20151112
  34. SLOW?K [Concomitant]
     Active Substance: POTASSIUM CHLORIDE
     Indication: HYPOKALAEMIA
     Dosage: 3600 MG/DAY
     Dates: start: 20150923, end: 20151001
  35. SOLU?CORTEF [Concomitant]
     Active Substance: HYDROCORTISONE SODIUM SUCCINATE
     Dosage: 100 MG/DAY
     Route: 065
     Dates: start: 20160408
  36. INFLIXIMAB BS FOR I.V. INFUSION100 MG [NK] [Suspect]
     Active Substance: INFLIXIMAB
     Dosage: 330 MG/BODY/DAY
     Route: 042
     Dates: start: 20160603, end: 20160603
  37. AMIPAREN [Concomitant]
     Active Substance: AMINO ACIDS
     Indication: COLITIS ULCERATIVE
     Dosage: 200 ML/DAY
     Dates: start: 20150922, end: 20151028
  38. PREDONINE [Concomitant]
     Active Substance: PREDNISOLONE
     Indication: PROPHYLAXIS
     Dosage: 50 MG/DAY
     Dates: start: 20150926, end: 20150930
  39. SOLU?CORTEF [Concomitant]
     Active Substance: HYDROCORTISONE SODIUM SUCCINATE
     Indication: PROPHYLAXIS
     Dosage: 200 MG/DAY
     Dates: start: 20151003, end: 20151004
  40. ASACOL [Concomitant]
     Active Substance: MESALAMINE
     Indication: COLITIS ULCERATIVE
     Dosage: 3600 MG/DAY
     Dates: start: 20151027
  41. BFLUID [Concomitant]
     Active Substance: AMINO ACIDS\DEXTROSE\ELECTROLYTES NOS\VITAMINS
     Indication: COLITIS ULCERATIVE
     Dosage: 1000 ML/DAY
     Dates: start: 20150918, end: 20150921
  42. SOLYUGEN F [Concomitant]
     Indication: COLITIS ULCERATIVE
     Dosage: 500 ML/DAY
     Dates: start: 20150918, end: 20150921
  43. BIO?THREE [Concomitant]
     Active Substance: HERBALS
     Indication: COLITIS ULCERATIVE
     Dosage: 6 DF/DAY
     Dates: start: 20151127
  44. TALION                             /01587402/ [Concomitant]
     Active Substance: BEPOTASTINE
     Indication: PROPHYLAXIS
     Dosage: 20 MG/DAY
     Route: 065
     Dates: start: 20160401, end: 20160411
  45. INFLIXIMAB BS FOR I.V. INFUSION100 MG [NK] [Suspect]
     Active Substance: INFLIXIMAB
     Dosage: 310 MG/BODY/DAY
     Route: 042
     Dates: start: 20151218, end: 20151218
  46. INFLIXIMAB BS FOR I.V. INFUSION100 MG [NK] [Suspect]
     Active Substance: INFLIXIMAB
     Dosage: 340 MG/BODY/DAY
     Route: 042
     Dates: start: 20160617, end: 20160617
  47. PREDONINE [Concomitant]
     Active Substance: PREDNISOLONE
     Dosage: 15 MG/DAY
     Dates: start: 20151005, end: 20151011
  48. SOLU?CORTEF [Concomitant]
     Active Substance: HYDROCORTISONE SODIUM SUCCINATE
     Indication: PROPHYLAXIS
     Dosage: 300 MG/DAY
     Dates: start: 20151001, end: 20151002
  49. PREDONEMA [Concomitant]
     Active Substance: PREDNISOLONE SODIUM PHOSPHATE
     Indication: COLITIS ULCERATIVE
     Dosage: 20 MG/DAY
     Dates: start: 20151106, end: 20151218
  50. SOLYUGEN G [Concomitant]
     Indication: COLITIS ULCERATIVE
     Dosage: 500 ML/DAY
     Dates: start: 20150918, end: 20150920
  51. MIYA?BM [Concomitant]
     Active Substance: CLOSTRIDIUM BUTYRICUM SPORES STRAIN M-55
     Indication: COLITIS ULCERATIVE
     Dosage: 6 DF/DAY
     Dates: start: 20151022
  52. RABEPRAZOLE SODIUM. [Concomitant]
     Active Substance: RABEPRAZOLE SODIUM
     Indication: PROPHYLAXIS AGAINST GASTROINTESTINAL ULCER
     Dosage: 10 MG/DAY
     Dates: start: 20151022, end: 20151028
  53. THYRADIN?S [Concomitant]
     Active Substance: LEVOTHYROXINE
     Indication: POSTOPERATIVE HYPOPITUITARISM
     Dosage: 75 ?G/DAY
     Dates: start: 20150919, end: 20151001
  54. INFLIXIMAB BS FOR I.V. INFUSION100 MG [NK] [Suspect]
     Active Substance: INFLIXIMAB
     Dosage: 300 MG/BODY/DAY
     Route: 042
     Dates: start: 20151019, end: 20151019
  55. INFLIXIMAB BS FOR I.V. INFUSION100 MG [NK] [Suspect]
     Active Substance: INFLIXIMAB
     Dosage: 290 MG/BODY/DAY
     Route: 042
     Dates: start: 20151106, end: 20151106
  56. INFLIXIMAB BS FOR I.V. INFUSION100 MG [NK] [Suspect]
     Active Substance: INFLIXIMAB
     Dosage: 670 MG/BODY/DAY
     Route: 042
     Dates: start: 20160909, end: 20160909
  57. PREDONINE [Concomitant]
     Active Substance: PREDNISOLONE
     Dosage: 10 MG/DAY
     Dates: start: 20151012, end: 20151018
  58. ELNEOPA NO.2 [Concomitant]
     Active Substance: AMINO ACIDS\CARBOHYDRATES\ELECTROLYTES NOS\VITAMINS
     Dosage: 2000 ML, DAILY
     Dates: start: 20151005, end: 20151028
  59. OMEPRAZOLE. [Concomitant]
     Active Substance: OMEPRAZOLE
     Indication: GASTROOESOPHAGEAL REFLUX DISEASE
     Dosage: 40 MG/DAY
     Dates: start: 20151028, end: 20151102
  60. DOGMATYL [Concomitant]
     Active Substance: SULPIRIDE
     Indication: DEPRESSION
     Dosage: 100 MG/DAY
     Dates: start: 20150918, end: 20151028
  61. CORTRIL [Concomitant]
     Active Substance: HYDROCORTISONE
     Indication: POSTOPERATIVE HYPOPITUITARISM
     Dosage: 50 MG/DAY
     Dates: start: 20150918, end: 20151001
  62. ELNEOPA NO.1 [Concomitant]
     Dosage: 2000 ML/DAY
     Dates: start: 20151001, end: 20151007
  63. IOPAQUE [Concomitant]
     Active Substance: IOHEXOL
     Indication: COMPUTERISED TOMOGRAM
     Dosage: 150 ML/DAY
     Dates: start: 20151111
  64. MESALAZINE [Concomitant]
     Active Substance: MESALAMINE
     Dosage: 1 G/DAY
     Dates: start: 20151127
  65. FERROUS SULFATE. [Concomitant]
     Active Substance: FERROUS SULFATE
     Indication: COLITIS ULCERATIVE
     Dosage: 105 MG/DAY
     Dates: start: 20151218, end: 20160212
  66. TALION                             /01587402/ [Concomitant]
     Active Substance: BEPOTASTINE
     Dosage: 20 MG/DAY
     Route: 065
     Dates: start: 20160520, end: 20160617
  67. TALION                             /01587402/ [Concomitant]
     Active Substance: BEPOTASTINE
     Dosage: 20 MG/DAY
     Route: 065
     Dates: start: 20160701, end: 20160715
  68. HYDROCORTONE                       /00028603/ [Concomitant]
     Active Substance: HYDROCORTISONE SODIUM PHOSPHATE
     Indication: PROPHYLAXIS
     Dosage: 500 MG/DAY
     Dates: start: 20160603
  69. GASTER [Concomitant]
     Active Substance: FAMOTIDINE
     Indication: PROPHYLAXIS
     Dosage: 20  MG/DAY
     Dates: start: 20160603

REACTIONS (6)
  - Cellulitis [Recovered/Resolved]
  - Inappropriate schedule of drug administration [Unknown]
  - Sepsis [Recovered/Resolved]
  - Enteritis infectious [Recovered/Resolved]
  - Urticaria [Recovered/Resolved]
  - Gastric ulcer haemorrhage [Recovered/Resolved]

NARRATIVE: CASE EVENT DATE: 20151028
